FAERS Safety Report 4594728-0 (Version None)
Quarter: 2005Q1

REPORT INFORMATION
  Report Type: 
  Country: None (occurrence: None)
  Receive Date: 20050301
  Receipt Date: 20050126
  Transmission Date: 20050727
  Serious: No
  Sender: FDA-Public Use
  Company Number: US-BRISTOL-MYERS SQUIBB COMPANY-12838652

PATIENT
  Age: 52 Year
  Sex: Male
  Weight: 101 kg

DRUGS (7)
  1. ERBITUX [Suspect]
     Indication: COLORECTAL CANCER METASTATIC
     Dosage: REC'D WEEKLY DOSES OF 500-800 MG FROM 06-MAY-04 TO 26-JAN-05 (TOTAL OF 36 TREATMENTS)
     Route: 042
  2. TYLENOL (CAPLET) [Concomitant]
     Indication: PREMEDICATION
  3. BENADRYL [Concomitant]
     Indication: PREMEDICATION
  4. ATIVAN [Concomitant]
     Indication: PREMEDICATION
  5. SOLU-CORTEF [Concomitant]
     Indication: PREMEDICATION
  6. GLUCOVANCE [Concomitant]
  7. HYDROCHLOROTHIAZIDE [Concomitant]

REACTIONS (3)
  - BLOOD GLUCOSE INCREASED [None]
  - EATING DISORDER [None]
  - HYPERTENSION [None]
